FAERS Safety Report 7962337-9 (Version None)
Quarter: 2011Q4

REPORT INFORMATION
  Report Type: 
  Country: None (occurrence: None)
  Receive Date: 20111121
  Receipt Date: 20110914
  Transmission Date: 20120403
  Serious: No
  Sender: FDA-Public Use
  Company Number: 1000023874

PATIENT
  Age: 41 Year
  Sex: Male

DRUGS (5)
  1. KLONOPIN [Concomitant]
  2. VIIBRYD [Suspect]
     Indication: MAJOR DEPRESSION
     Dosage: 10;20;40 MG (1;20;40 MG, 1 IN 1 D), ORAL
     Route: 048
     Dates: start: 20110823, end: 20110829
  3. VIIBRYD [Suspect]
     Indication: MAJOR DEPRESSION
     Dosage: 10;20;40 MG (1;20;40 MG, 1 IN 1 D), ORAL
     Route: 048
     Dates: start: 20110816, end: 20110822
  4. VIIBRYD [Suspect]
     Indication: MAJOR DEPRESSION
     Dosage: 10;20;40 MG (1;20;40 MG, 1 IN 1 D), ORAL
     Route: 048
     Dates: start: 20110830
  5. ADDERALL (OBETROL (OBETROL) [Concomitant]

REACTIONS (4)
  - DIARRHOEA [None]
  - ABDOMINAL PAIN [None]
  - ABDOMINAL DISTENSION [None]
  - FLATULENCE [None]
